FAERS Safety Report 8794815 (Version 1)
Quarter: 2012Q4

REPORT INFORMATION
  Report Type: 
  Country: ES (occurrence: ES)
  Receive Date: 20120917
  Receipt Date: 20120917
  Transmission Date: 20130627
  Serious: Yes (Other)
  Sender: FDA-Public Use
  Company Number: ES-BAXTER-2012BAX016965

PATIENT
  Sex: Male

DRUGS (1)
  1. ARTISS [Suspect]
     Indication: BRACHIOPLASTY
     Route: 065

REACTIONS (2)
  - Gangrene [Unknown]
  - Wound drainage [Recovered/Resolved]
